FAERS Safety Report 16522426 (Version 1)
Quarter: 2019Q3

REPORT INFORMATION
  Report Type: Spontaneous
  Country: ES (occurrence: ES)
  Receive Date: 20190702
  Receipt Date: 20190702
  Transmission Date: 20191004
  Serious: Yes (Hospitalization)
  Sender: FDA-Public Use
  Company Number: ES-MYLANLABS-2019M1061160

PATIENT
  Age: 59 Year
  Sex: Male
  Weight: 59 kg

DRUGS (15)
  1. AVELUMAB [Suspect]
     Active Substance: AVELUMAB
     Dosage: 518.4 MILLIGRAM, CYCLE, (ONCE EVERY 2 WEEKS)
     Route: 042
     Dates: start: 20170412
  2. CISPLATIN. [Suspect]
     Active Substance: CISPLATIN
     Indication: PRODUCT USED FOR UNKNOWN INDICATION
     Dosage: 135.75 MILLIGRAM
     Route: 042
     Dates: end: 20170208
  3. CISPLATIN. [Suspect]
     Active Substance: CISPLATIN
     Indication: PRODUCT USED FOR UNKNOWN INDICATION
     Dosage: 135.75 MILLIGRAM
     Route: 042
  4. CISPLATIN. [Suspect]
     Active Substance: CISPLATIN
     Indication: NON-SMALL CELL LUNG CANCER
     Dosage: 135.75 MG, UNK
     Route: 042
     Dates: start: 20161025
  5. DOCETAXEL. [Suspect]
     Active Substance: DOCETAXEL
     Indication: NON-SMALL CELL LUNG CANCER
     Dosage: 75 MILLIGRAM/SQ. METER, Q3W
     Route: 042
     Dates: start: 20170427
  6. SPIRIVA RESPIMAT [Concomitant]
     Active Substance: TIOTROPIUM BROMIDE
     Indication: BRONCHITIS CHRONIC
     Dosage: 5 UG, 1X/DAY
     Route: 055
     Dates: start: 20161128
  7. AVELUMAB [Suspect]
     Active Substance: AVELUMAB
     Dosage: 650 MG, CYCLIC(ONCE EVERY 2 WEEKS)
     Route: 042
  8. AVELUMAB [Suspect]
     Active Substance: AVELUMAB
     Dosage: 650 MILLIGRAM, CYCLE, (ONCE EVERY 2 WEEKS)
     Route: 042
     Dates: start: 20170316
  9. GEMCITABINE HYDROCHLORIDE. [Suspect]
     Active Substance: GEMCITABINE HYDROCHLORIDE
     Indication: PRODUCT USED FOR UNKNOWN INDICATION
     Dosage: 2262.5 UNK, UNK
     Route: 042
  10. DOCETAXEL. [Suspect]
     Active Substance: DOCETAXEL
     Dosage: 75 MG/M2, UNK
     Dates: start: 20170529
  11. AVELUMAB [Suspect]
     Active Substance: AVELUMAB
     Indication: NON-SMALL CELL LUNG CANCER
     Dosage: 650 MG, CYCLIC(ONCE EVERY 2 WEEKS)
     Route: 042
  12. GEMCITABINE HYDROCHLORIDE. [Suspect]
     Active Substance: GEMCITABINE HYDROCHLORIDE
     Dosage: 2262 MILLIGRAM
     Route: 042
     Dates: end: 20170215
  13. GEMCITABINE. [Suspect]
     Active Substance: GEMCITABINE
     Indication: PRODUCT USED FOR UNKNOWN INDICATION
     Dosage: 2262.5 UNK, UNK
     Route: 042
  14. GEMCITABINE HYDROCHLORIDE. [Suspect]
     Active Substance: GEMCITABINE HYDROCHLORIDE
     Indication: NON-SMALL CELL LUNG CANCER
     Dosage: 2262.5 MG, UNK
     Route: 042
     Dates: start: 20161025
  15. PLUSVENT [Concomitant]
     Active Substance: FLUTICASONE PROPIONATE\SALMETEROL XINAFOATE
     Indication: BRONCHITIS CHRONIC
     Dosage: 250/50 MCG
     Route: 055
     Dates: start: 201408

REACTIONS (2)
  - Bronchitis [Recovered/Resolved]
  - Diarrhoea [Recovered/Resolved]

NARRATIVE: CASE EVENT DATE: 20170510
